FAERS Safety Report 19402943 (Version 1)
Quarter: 2021Q2

REPORT INFORMATION
  Report Type: Spontaneous
  Country: ES (occurrence: ES)
  Receive Date: 20210610
  Receipt Date: 20210610
  Transmission Date: 20210717
  Serious: Yes (Death, Other)
  Sender: FDA-Public Use
  Company Number: ES-GILEAD-2021-0534976

PATIENT
  Age: 39 Year
  Sex: Female

DRUGS (1)
  1. YESCARTA [Suspect]
     Active Substance: AXICABTAGENE CILOLEUCEL
     Indication: DIFFUSE LARGE B-CELL LYMPHOMA
     Dosage: 68 ML, QD
     Route: 042
     Dates: start: 20160216, end: 20160216

REACTIONS (2)
  - Cytokine release syndrome [Fatal]
  - Immune effector cell-associated neurotoxicity syndrome [Fatal]

NARRATIVE: CASE EVENT DATE: 20210219
